FAERS Safety Report 25276964 (Version 2)
Quarter: 2025Q2

REPORT INFORMATION
  Report Type: Report from Study
  Country: CA (occurrence: CA)
  Receive Date: 20250507
  Receipt Date: 20250526
  Transmission Date: 20250716
  Serious: Yes (Hospitalization)
  Sender: TAKEDA
  Company Number: CA-TAKEDA-2025TUS042342

PATIENT
  Sex: Female

DRUGS (6)
  1. VEDOLIZUMAB [Suspect]
     Active Substance: VEDOLIZUMAB
     Indication: Colitis ulcerative
  2. Cortiment [Concomitant]
  3. ROSUVASTATIN [Concomitant]
     Active Substance: ROSUVASTATIN
  4. ELIQUIS [Concomitant]
     Active Substance: APIXABAN
  5. THYROXINE [Concomitant]
     Active Substance: LEVOTHYROXINE
  6. BISOPROLOL [Concomitant]
     Active Substance: BISOPROLOL

REACTIONS (2)
  - Haemorrhage [Not Recovered/Not Resolved]
  - Gait inability [Unknown]
